FAERS Safety Report 8169585-6 (Version None)
Quarter: 2012Q1

REPORT INFORMATION
  Report Type: 
  Country: None (occurrence: None)
  Receive Date: 20120104
  Receipt Date: 20111129
  Transmission Date: 20120608
  Serious: No
  Sender: FDA-Public Use
  Company Number: 2011HGS-002874

PATIENT
  Age: 46 Year
  Sex: Female
  Weight: 128.8216 kg

DRUGS (16)
  1. PERCOCET (OXYCOCET) (PARACETAMOL, OXYCODONE HYDROCHLORIDE) [Concomitant]
  2. PRILOSEC [Concomitant]
  3. LIDODERM [Concomitant]
  4. ADVAIR (FLUTICASONE PROPIONATE W/SALMETEROL) [Concomitant]
  5. PRISTIQUE (ALL OTHER THERAPEUTIC PRODUCTS) (NULL) [Concomitant]
  6. COUMADIN [Concomitant]
  7. BENLYSTA [Suspect]
     Indication: SYSTEMIC LUPUS ERYTHEMATOSUS
     Dosage: 10 MG/KG, 1 IN 28 D, INTRAVENOUS DRIP
     Route: 041
     Dates: start: 20111102
  8. CELLCEPT [Concomitant]
  9. STOOL SOFTENER (ALL OTHER THERAPEUTIC PRODUCTS) (NULL) [Concomitant]
  10. XANAX [Concomitant]
  11. COLCRYS (COLCHICINE) [Concomitant]
  12. TOPAMAX [Concomitant]
  13. HYDROCHLOROTHIAZIDE [Concomitant]
  14. ZANAFLEX (TIZANIDSINE HYDROCHLORIDE) [Concomitant]
  15. DITROPAN [Concomitant]
  16. PHENERGAN HCL [Concomitant]

REACTIONS (3)
  - COUGH [None]
  - DYSPNOEA [None]
  - DIARRHOEA [None]
